FAERS Safety Report 5183119-X (Version None)
Quarter: 2006Q4

REPORT INFORMATION
  Report Type: 
  Country: None (occurrence: None)
  Receive Date: 20061220
  Receipt Date: 20051219
  Transmission Date: 20070319
  Serious: No
  Sender: FDA-Public Use
  Company Number: US-GLAXOSMITHKLINE-A0586235A

PATIENT
  Sex: Female

DRUGS (6)
  1. NICODERM CQ [Suspect]
     Indication: SMOKING CESSATION THERAPY
  2. NICODERM [Suspect]
     Indication: SMOKING CESSATION THERAPY
  3. NICODERM CQ [Suspect]
     Indication: SMOKING CESSATION THERAPY
  4. NICORETTE [Suspect]
     Indication: SMOKING CESSATION THERAPY
  5. NICORETTE [Suspect]
     Indication: SMOKING CESSATION THERAPY
  6. COMMIT [Suspect]
     Indication: SMOKING CESSATION THERAPY

REACTIONS (7)
  - APPLICATION SITE ERYTHEMA [None]
  - APPLICATION SITE PRURITUS [None]
  - APPLICATION SITE REACTION [None]
  - APPLICATION SITE URTICARIA [None]
  - GINGIVAL BLEEDING [None]
  - GINGIVAL PAIN [None]
  - STOMACH DISCOMFORT [None]
